FAERS Safety Report 12322240 (Version 7)
Quarter: 2016Q3

REPORT INFORMATION
  Report Type: Spontaneous
  Country: DE (occurrence: DE)
  Receive Date: 20160502
  Receipt Date: 20160923
  Transmission Date: 20161109
  Serious: Yes (Death, Hospitalization, Other)
  Sender: FDA-Public Use
  Company Number: DE-SA-2016SA080913

PATIENT
  Sex: Female
  Weight: 97 kg

DRUGS (13)
  1. RANITIDINE ^RATIOPHARM^ [Concomitant]
     Indication: PROPHYLAXIS
     Dosage: DOSAGE: 1-0-0
     Route: 042
     Dates: start: 20160418, end: 20160420
  2. MAYRA [Concomitant]
     Indication: CONTRACEPTION
     Route: 048
  3. REKAWAN [Concomitant]
     Active Substance: POTASSIUM CHLORIDE
     Dates: start: 20160418
  4. TAVEGIL [Concomitant]
     Active Substance: CLEMASTINE FUMARATE
     Indication: PROPHYLAXIS
     Dosage: DOSAGE TEXT: 1-0-0
     Route: 042
     Dates: start: 20160418, end: 20160420
  5. METHYLPREDNISOLONE. [Suspect]
     Active Substance: METHYLPREDNISOLONE
     Indication: PROPHYLAXIS
     Dosage: DOSAGE; 1-0-0
     Route: 042
     Dates: start: 20160418, end: 20160420
  6. TAVANIC [Concomitant]
     Active Substance: LEVOFLOXACIN
     Indication: URINARY TRACT INFECTION
     Dosage: DOSAGE TEXT; 1-0-0
     Route: 048
     Dates: start: 20160418, end: 20160420
  7. CETIRIZINE [Concomitant]
     Active Substance: CETIRIZINE HYDROCHLORIDE
     Dates: start: 20160418
  8. ACICLOVIR [Concomitant]
     Active Substance: ACYCLOVIR
     Dates: start: 20160418
  9. MONO-EMBOLEX [Concomitant]
     Active Substance: CERTOPARIN SODIUM
     Route: 058
     Dates: start: 20160418
  10. LEMTRADA [Suspect]
     Active Substance: ALEMTUZUMAB
     Indication: MULTIPLE SCLEROSIS
     Dosage: EXACT DAILY DOSE NOT INDICATED, ONLY UNIT DOSE?DOSAGE TEXT: 1-0-0
     Route: 041
     Dates: start: 20160418, end: 20160420
  11. FAMPYRA [Concomitant]
     Active Substance: DALFAMPRIDINE
  12. VESIKUR [Concomitant]
     Active Substance: SOLIFENACIN SUCCINATE
     Indication: URGE INCONTINENCE
  13. PARACETAMOL [Concomitant]
     Active Substance: ACETAMINOPHEN
     Dates: start: 20160418

REACTIONS (6)
  - Cerebral haemorrhage [Fatal]
  - Hypertension [Fatal]
  - Bradycardia [Fatal]
  - Seizure [Fatal]
  - Vomiting [Fatal]
  - Nausea [Fatal]

NARRATIVE: CASE EVENT DATE: 20160421
